FAERS Safety Report 15617509 (Version 1)
Quarter: 2018Q4

REPORT INFORMATION
  Report Type: Spontaneous
  Country: US (occurrence: US)
  Receive Date: 20181113
  Receipt Date: 20181113
  Transmission Date: 20190205
  Serious: Yes (Hospitalization)
  Sender: FDA-Public Use
  Company Number: None

PATIENT
  Sex: Female

DRUGS (1)
  1. LUPRON DEPOT [Suspect]
     Active Substance: LEUPROLIDE ACETATE
     Indication: ENDOMETRIOSIS
     Dosage: 11.25 MG EVERY 3 MONTHS; INTRAMUSCULAR?
     Route: 030
     Dates: start: 20180731

REACTIONS (2)
  - Refusal of treatment by patient [None]
  - Inappropriate schedule of product administration [None]
